FAERS Safety Report 17203293 (Version 1)
Quarter: 2019Q4

REPORT INFORMATION
  Report Type: Spontaneous
  Country: US (occurrence: US)
  Receive Date: 20191226
  Receipt Date: 20191226
  Transmission Date: 20200122
  Serious: No
  Sender: FDA-Public Use
  Company Number: US-UPSHER-SMITH LABORATORIES, LLC-2019USL00308

PATIENT
  Sex: Female
  Weight: 90.7 kg

DRUGS (10)
  1. METOPROLOL. [Suspect]
     Active Substance: METOPROLOL
     Dosage: 25 MG, 1X/DAY AT NIGHT
  2. WARFARIN [Concomitant]
     Active Substance: WARFARIN
     Dosage: 8 MG, 1X/DAY (TOTAL DAILY DOSE OF 9MG)
  3. SYNTHROID [Concomitant]
     Active Substance: LEVOTHYROXINE SODIUM
     Dosage: 50 ?G, 1X/WEEK ON TUESDAY (150 ?G TOTAL DAILY DOSE)
  4. FOLIC ACID. [Concomitant]
     Active Substance: FOLIC ACID
  5. WARFARIN [Concomitant]
     Active Substance: WARFARIN
     Dosage: 1 MG, 1X/DAY (TOTAL DAILY DOSE OF 9MG)
  6. VITAMIN B12 [Concomitant]
     Active Substance: CYANOCOBALAMIN
  7. KLOR-CON M [Suspect]
     Active Substance: POTASSIUM CHLORIDE
     Indication: BLOOD POTASSIUM DECREASED
     Dosage: 20 MEQ, 1X/DAY
     Route: 048
     Dates: end: 201907
  8. METOPROLOL. [Suspect]
     Active Substance: METOPROLOL
     Dosage: 50 MG, 1X/DAY IN THE MORNING
  9. SYNTHROID [Concomitant]
     Active Substance: LEVOTHYROXINE SODIUM
     Dosage: 100 ?G, 1X/DAY
  10. KLOR-CON M [Suspect]
     Active Substance: POTASSIUM CHLORIDE
     Indication: BLOOD POTASSIUM DECREASED
     Dosage: 10 MEQ, 2X/DAY
     Route: 048
     Dates: end: 201907

REACTIONS (4)
  - Product use complaint [Recovered/Resolved]
  - Abdominal discomfort [Recovered/Resolved]
  - Dysphagia [Recovered/Resolved]
  - Diarrhoea [Recovered/Resolved]
